FAERS Safety Report 10137356 (Version 2)
Quarter: 2014Q2

REPORT INFORMATION
  Report Type: Spontaneous
  Country: US (occurrence: None)
  Receive Date: 20140425
  Receipt Date: 20140509
  Transmission Date: 20141212
  Serious: Yes (Death)
  Sender: FDA-Public Use
  Company Number: UTC-047781

PATIENT
  Age: 61 Year
  Sex: Female
  Weight: 101.5 kg

DRUGS (1)
  1. REMODULIN [Suspect]
     Indication: PULMONARY ARTERIAL HYPERTENSION
     Dosage: 48.96 UG/KG (0.034 UG/KG,1 IN 1 MIN), INTRAVENOUS DRIP
     Route: 041
     Dates: start: 20131116

REACTIONS (5)
  - Death [None]
  - Fluid overload [None]
  - Pulmonary arterial hypertension [None]
  - Condition aggravated [None]
  - Right ventricular failure [None]
